FAERS Safety Report 16528133 (Version 2)
Quarter: 2019Q3

REPORT INFORMATION
  Report Type: Report from Study
  Country: AU (occurrence: AU)
  Receive Date: 20190704
  Receipt Date: 20190722
  Transmission Date: 20191004
  Serious: Yes (Life-Threatening, Hospitalization, Other)
  Sender: FDA-Public Use
  Company Number: AU-BRISTOL-MYERS SQUIBB COMPANY-BMS-2019-064215

PATIENT
  Age: 72 Year
  Sex: Male

DRUGS (9)
  1. IPILIMUMAB [Suspect]
     Active Substance: IPILIMUMAB
     Indication: METASTATIC MALIGNANT MELANOMA
     Dosage: 285 MILLIGRAM
     Route: 042
     Dates: start: 20190506, end: 20190617
  2. RISPERIDONE. [Concomitant]
     Active Substance: RISPERIDONE
     Indication: SCHIZOPHRENIFORM DISORDER
     Dosage: 8 MILLIGRAM
     Route: 048
     Dates: start: 2009
  3. DENOSUMAB [Suspect]
     Active Substance: DENOSUMAB
     Indication: METASTATIC MALIGNANT MELANOMA
     Dosage: 120 MILLIGRAM
     Route: 058
     Dates: start: 20190506, end: 20190617
  4. DIPROSONE [Concomitant]
     Active Substance: BETAMETHASONE DIPROPIONATE
     Indication: SKIN LESION
     Dosage: 0.9 PERCENT
     Route: 061
     Dates: start: 20190604
  5. CALTRATE [CALCIUM CARBONATE;COLECALCIFEROL] [Concomitant]
     Indication: PROPHYLAXIS
     Dosage: 1 TAB
     Route: 048
     Dates: start: 20190503
  6. CANDESARTAN. [Concomitant]
     Active Substance: CANDESARTAN
     Indication: HYPERTENSION
     Dosage: 16 MILLIGRAM
     Route: 048
     Dates: start: 201812
  7. VITAMIN D NOS [Concomitant]
     Active Substance: VITAMIN D NOS
     Indication: PROPHYLAXIS
     Dosage: 1 DOSAGE FORM=1000 U
     Route: 048
     Dates: start: 20190528
  8. PARACETAMOL [Concomitant]
     Active Substance: ACETAMINOPHEN
     Indication: HEADACHE
     Dosage: 1 GRAM, PRN
     Route: 048
     Dates: start: 1980
  9. NIVOLUMAB [Suspect]
     Active Substance: NIVOLUMAB
     Indication: METASTATIC MALIGNANT MELANOMA
     Dosage: 95 MILLIGRAM
     Route: 042
     Dates: start: 20190506, end: 20190617

REACTIONS (2)
  - Adrenocortical insufficiency acute [Unknown]
  - Hypophysitis [Recovered/Resolved]

NARRATIVE: CASE EVENT DATE: 20190627
